FAERS Safety Report 7203023-2 (Version None)
Quarter: 2010Q4

REPORT INFORMATION
  Report Type: 
  Country: None (occurrence: None)
  Receive Date: 20101229
  Receipt Date: 20101217
  Transmission Date: 20110411
  Serious: Yes (Other)
  Sender: FDA-Public Use
  Company Number: BR-GENENTECH-308352

PATIENT
  Sex: Female
  Weight: 72 kg

DRUGS (10)
  1. RITUXIMAB [Suspect]
     Indication: RHEUMATOID ARTHRITIS
     Dosage: 1000 MG, UNK
     Route: 042
     Dates: start: 20100407, end: 20100512
  2. DICLOFENAC SODIUM [Concomitant]
     Indication: PRODUCT USED FOR UNKNOWN INDICATION
     Dosage: UNK
  3. METHOTREXATE [Concomitant]
  4. PREDNISONE [Concomitant]
  5. LEVOTHYROXINE [Concomitant]
  6. CITALOPRAM [Concomitant]
  7. PLASIL [Concomitant]
  8. VITAMIN D [Concomitant]
  9. CALCIUM [Concomitant]
     Indication: PRODUCT USED FOR UNKNOWN INDICATION
  10. ANALGESIC NOS [Concomitant]
     Indication: PRODUCT USED FOR UNKNOWN INDICATION

REACTIONS (7)
  - ABASIA [None]
  - ARTHRALGIA [None]
  - DEFORMITY [None]
  - DRUG INEFFECTIVE [None]
  - MALAISE [None]
  - OEDEMA PERIPHERAL [None]
  - PYREXIA [None]
